FAERS Safety Report 15110927 (Version 2)
Quarter: 2018Q3

REPORT INFORMATION
  Report Type: Spontaneous
  Country: JP (occurrence: JP)
  Receive Date: 20180705
  Receipt Date: 20180914
  Transmission Date: 20181010
  Serious: Yes (Death)
  Sender: FDA-Public Use
  Company Number: JP-TAKEDA-2018TUS021452

PATIENT
  Age: 82 Year
  Sex: Male

DRUGS (3)
  1. HEMOCURON [Concomitant]
     Active Substance: TRIBENOSIDE
     Indication: HYPERTENSION
     Dosage: 600 MG, UNK
     Route: 048
  2. FEBURIC [Suspect]
     Active Substance: FEBUXOSTAT
     Indication: HYPERURICAEMIA
     Dosage: 20 MG, QD
     Route: 048
  3. SOMATULINE                         /01330102/ [Suspect]
     Active Substance: LANREOTIDE ACETATE
     Indication: ACROMEGALY
     Dosage: 90 MG, Q4WEEKS
     Route: 058
     Dates: start: 20150218, end: 20180502

REACTIONS (1)
  - Drowning [Fatal]

NARRATIVE: CASE EVENT DATE: 20180515
